FAERS Safety Report 25440444 (Version 1)
Quarter: 2025Q2

REPORT INFORMATION
  Report Type: Spontaneous
  Country: US (occurrence: None)
  Receive Date: 20250616
  Receipt Date: 20250616
  Transmission Date: 20250716
  Serious: Yes (Hospitalization)
  Sender: FDA-CTU
  Company Number: None

PATIENT
  Age: 54 Year
  Sex: Male
  Weight: 84 kg

DRUGS (6)
  1. APALUTAMIDE [Suspect]
     Active Substance: APALUTAMIDE
     Indication: Prostate cancer metastatic
     Dosage: FREQUENCY : DAILY;?
     Route: 048
     Dates: start: 20250107, end: 20250603
  2. ATORVASTATIN [Concomitant]
     Active Substance: ATORVASTATIN
  3. calcium carbonate-vitamin D3 1000mg-20mcg tablet [Concomitant]
  4. LISINOPRIL [Concomitant]
     Active Substance: LISINOPRIL
  5. oxybutynin 5mg tablet [Concomitant]
  6. tamsulosin  0.4mg capsule [Concomitant]

REACTIONS (2)
  - Hepatotoxicity [None]
  - Rash [None]

NARRATIVE: CASE EVENT DATE: 20250605
